FAERS Safety Report 9826272 (Version 1)
Quarter: 2014Q1

REPORT INFORMATION
  Report Type: Spontaneous
  Country: US (occurrence: US)
  Receive Date: 20140117
  Receipt Date: 20140117
  Transmission Date: 20141002
  Serious: Yes (Hospitalization)
  Sender: FDA-Public Use
  Company Number: US-BAYER-2014-006175

PATIENT
  Age: 26 Year
  Sex: Female
  Weight: 86.62 kg

DRUGS (33)
  1. YAZ [Suspect]
     Indication: CONTRACEPTION
  2. SINGULAIR [Concomitant]
     Indication: HYPERSENSITIVITY
     Dosage: 10 MG, PRN
     Route: 048
  3. SINGULAIR [Concomitant]
     Indication: HYPERSENSITIVITY
     Dosage: 10 MG Q DAY
     Route: 048
  4. DILAUDID [Concomitant]
     Dosage: 5 MG, UNK
     Route: 042
  5. TORADOL [Concomitant]
     Dosage: 30 MG EVERY 8 HR 3 DOSES
     Route: 042
  6. ANCEF [Concomitant]
     Dosage: 1 G, UNK
     Route: 042
  7. CLEOCIN [Concomitant]
     Dosage: 900 MG, UNK
     Route: 042
  8. KETOROLAC TROMETHAMINE [Concomitant]
     Dosage: 30 MG EVERY 8 HOURS
     Route: 042
  9. MORPHINE SULFATE [Concomitant]
     Dosage: 2 MG, UNK
     Route: 042
  10. CLEOCIN PHOSPHATE [Concomitant]
     Dosage: 900 MG EVERY 8 HOURS
     Route: 042
  11. MYLICON [Concomitant]
     Dosage: 80 MG, TID UNTIL BOWEL MOVEMENT
     Route: 048
  12. ATARAX [Concomitant]
     Dosage: 25 MG Q 6 [HOURS]
     Route: 048
  13. MOM [Concomitant]
     Indication: CONSTIPATION
     Dosage: 30 CC Q 6 [HOURS] PRN
     Route: 048
  14. MOM [Concomitant]
     Indication: CONSTIPATION
     Dosage: 60 MG, UNK
     Route: 048
  15. PEPCID [Concomitant]
     Dosage: 20 MG, BID
     Route: 048
  16. PREDNISONE [Concomitant]
     Dosage: 20 MG, BID
     Route: 048
  17. DIPHENHYDRAMINE HYDROCHLORIDE [Concomitant]
     Indication: RASH PRURITIC
     Dosage: 25 MG EVERY 4 TO 6 HRS PN
     Route: 048
  18. LORCET PLUS [Concomitant]
     Indication: PAIN
     Dosage: 10/650 [ONE] Q 4 [HOURS] PRN
     Route: 048
  19. SIMETHICONE [Concomitant]
     Indication: FLATULENCE
     Dosage: 80 MG, TID
     Route: 048
  20. BENADRYL [Concomitant]
     Indication: RASH PRURITIC
     Dosage: 50 MG Q 4-6 HRS PRN
     Route: 048
  21. HYDROXYZINE HCL [Concomitant]
     Dosage: 25 MG EVERY 6 HOURS
     Route: 048
  22. ZYRTEC [Concomitant]
     Dosage: 10 MG DAILY
     Route: 048
  23. ZYRTEC [Concomitant]
     Dosage: ALTERNATE DAILY
     Route: 048
  24. NASONEX [Concomitant]
     Dosage: 2 PUFFS EVERY OTHER NIGHT
     Route: 045
  25. MORPHINE [Concomitant]
  26. PHENERGAN [Concomitant]
  27. DARVOCET [Concomitant]
  28. PROTONIX [Concomitant]
     Dosage: 40 MG, UNK
     Route: 048
  29. NEXIUM [Concomitant]
     Dosage: 40 MG, UNK
     Route: 048
  30. ZANTAC [Concomitant]
     Dosage: 150 MG, UNK
     Route: 048
  31. DULCOLAX [BISACODYL] [Concomitant]
  32. TYLENOL [PARACETAMOL] [Concomitant]
  33. LORCET [Concomitant]

REACTIONS (1)
  - Pulmonary embolism [Recovering/Resolving]
